FAERS Safety Report 21171528 (Version 3)
Quarter: 2023Q2

REPORT INFORMATION
  Report Type: Report from Study
  Country: US (occurrence: US)
  Receive Date: 20220804
  Receipt Date: 20230627
  Transmission Date: 20230721
  Serious: Yes (Hospitalization, Other)
  Sender: FDA-Public Use
  Company Number: US-ARGENX-2022-ARGX-US001390

PATIENT
  Sex: Female
  Weight: 47.619 kg

DRUGS (1)
  1. VYVGART [Suspect]
     Active Substance: EFGARTIGIMOD ALFA-FCAB
     Indication: Myasthenia gravis
     Dosage: UNK

REACTIONS (7)
  - Arteriovenous fistula occlusion [Unknown]
  - Chronic kidney disease [Unknown]
  - Herpes zoster [Unknown]
  - Arthritis bacterial [Not Recovered/Not Resolved]
  - Urinary tract infection [Unknown]
  - Gout [Unknown]
  - Dysuria [Unknown]
